FAERS Safety Report 4728525-X (Version None)
Quarter: 2005Q3

REPORT INFORMATION
  Report Type: 
  Country: None (occurrence: None)
  Receive Date: 20050729
  Receipt Date: 20050421
  Transmission Date: 20060218
  Serious: No
  Sender: FDA-Public Use
  Company Number: US-GLAXOSMITHKLINE-A0555214A

PATIENT
  Age: 81 Year
  Sex: Female

DRUGS (11)
  1. ZANTAC [Suspect]
     Dosage: 150MG TWICE PER DAY
     Route: 048
  2. TUMS [Concomitant]
  3. ALBUTEROL [Concomitant]
  4. ATROVENT [Concomitant]
  5. NEBULIZER [Concomitant]
  6. DEXAMETHASONE [Concomitant]
  7. XANAX [Concomitant]
  8. MAGNESIUM [Concomitant]
  9. VITAMIN B6 [Concomitant]
  10. FOLIC ACID [Concomitant]
  11. ESTER C [Concomitant]

REACTIONS (2)
  - DRUG INEFFECTIVE [None]
  - DYSPEPSIA [None]
